FAERS Safety Report 4863002-7 (Version None)
Quarter: 2005Q4

REPORT INFORMATION
  Report Type: 
  Country: None (occurrence: None)
  Receive Date: 20051221
  Receipt Date: 20050502
  Transmission Date: 20060501
  Serious: Yes (Life-Threatening)
  Sender: FDA-Public Use
  Company Number: US-MERCK-0505USA00318

PATIENT
  Age: 56 Year
  Sex: Male
  Weight: 70 kg

DRUGS (6)
  1. VIOXX [Suspect]
     Indication: ARTHRITIS
     Route: 048
  2. CELEBREX [Suspect]
     Route: 065
     Dates: start: 19970101, end: 20050101
  3. [THERAPY UNSPECIFIED] [Concomitant]
     Indication: HYPERTENSION
     Route: 065
  4. DILTIAZEM [Concomitant]
     Indication: ARTHRITIS
     Route: 065
     Dates: start: 19990101, end: 20050101
  5. DILTIAZEM [Concomitant]
     Indication: FIBROMYALGIA
     Route: 065
     Dates: start: 19990101, end: 20050101
  6. LORTAB [Concomitant]
     Indication: PAIN
     Route: 065

REACTIONS (3)
  - CHEST PAIN [None]
  - POLLAKIURIA [None]
  - RENAL DISORDER [None]
